FAERS Safety Report 16785743 (Version 2)
Quarter: 2019Q3

REPORT INFORMATION
  Report Type: Spontaneous
  Country: US (occurrence: US)
  Receive Date: 20190909
  Receipt Date: 20190917
  Transmission Date: 20191005
  Serious: No
  Sender: FDA-Public Use
  Company Number: US-PFIZER INC-2019387518

PATIENT

DRUGS (1)
  1. CLEOCIN [Suspect]
     Active Substance: CLINDAMYCIN PHOSPHATE
     Dosage: UNK (APPLY QD (ONCE DAILY)-BID (TWICE DAILY) TO FACE)
     Route: 061

REACTIONS (1)
  - Off label use [Unknown]
